FAERS Safety Report 8075880-1 (Version None)
Quarter: 2012Q1

REPORT INFORMATION
  Report Type: 
  Country: None (occurrence: None)
  Receive Date: 20120127
  Receipt Date: 20120123
  Transmission Date: 20120608
  Serious: Yes (Other)
  Sender: FDA-Public Use
  Company Number: US-PFIZER INC-2004080610

PATIENT
  Sex: Female
  Weight: 58.5 kg

DRUGS (16)
  1. BEXTRA [Concomitant]
     Route: 048
  2. LIPITOR [Concomitant]
     Dosage: 10 MG, 1X/DAY
  3. ACTONEL [Concomitant]
     Route: 048
  4. PEPCID [Concomitant]
     Route: 048
  5. FUROSEMIDE [Concomitant]
     Dosage: 20 MG, 1X/DAY
  6. DYAZIDE [Concomitant]
     Route: 048
  7. COVERA-HS [Concomitant]
     Route: 048
  8. ACIPHEX [Concomitant]
     Route: 048
  9. VITAMIN D [Concomitant]
     Dosage: 50000 IU, EVERY FOUR WEEKS
     Route: 048
  10. NORVASC [Suspect]
     Route: 048
     Dates: start: 20040101, end: 20040101
  11. DENOSUMAB [Concomitant]
     Indication: OSTEOPOROSIS
     Dosage: UNK, EVERY SIX MONTHS
  12. MELOXICAM [Concomitant]
     Indication: OSTEOARTHRITIS
     Dosage: 7 MG, 1X/DAY
  13. LEVOXYL [Concomitant]
     Dosage: 0.025 MG, 1X/DAY
  14. NORVASC [Suspect]
     Dosage: UNK
     Route: 048
  15. ASPIRIN [Suspect]
     Indication: ILL-DEFINED DISORDER
     Route: 065
  16. NEXIUM [Concomitant]
     Dosage: 40 MG, 2X/DAY

REACTIONS (2)
  - ECCHYMOSIS [None]
  - THROMBOCYTOPENIA [None]
